FAERS Safety Report 9240781 (Version 1)
Quarter: 2013Q2

REPORT INFORMATION
  Report Type: Spontaneous
  Country: US (occurrence: US)
  Receive Date: 20130418
  Receipt Date: 20130418
  Transmission Date: 20140414
  Serious: No
  Sender: FDA-Public Use
  Company Number: US-ASTRAZENECA-2013SE21677

PATIENT
  Age: 65 Year
  Sex: Female
  Weight: 67.1 kg

DRUGS (14)
  1. NEXIUM [Suspect]
     Indication: DYSPEPSIA
     Route: 048
  2. ALPRAZOLAM [Concomitant]
     Indication: NERVOUSNESS
     Route: 048
     Dates: start: 2000
  3. ALPRAZOLAM [Concomitant]
     Indication: SOMNOLENCE
     Route: 048
     Dates: start: 2000
  4. SERTRALINE [Concomitant]
     Indication: ANXIETY
     Route: 048
     Dates: start: 2010
  5. SERTRALINE [Concomitant]
     Indication: PANIC ATTACK
     Route: 048
     Dates: start: 2010
  6. WELLBUTRIN [Concomitant]
     Indication: DEPRESSION
     Route: 048
     Dates: start: 2000, end: 2002
  7. ASPIRIN [Concomitant]
     Indication: CARDIOVASCULAR EVENT PROPHYLAXIS
     Dosage: DAILY
     Route: 048
     Dates: start: 1991
  8. NIACIN [Concomitant]
     Indication: BLOOD CHOLESTEROL INCREASED
     Route: 048
     Dates: start: 201208
  9. ISOSORBIDE [Concomitant]
     Indication: HYPERTENSION
     Route: 048
  10. ZETIA [Concomitant]
     Indication: BLOOD CHOLESTEROL INCREASED
     Route: 048
     Dates: start: 2001
  11. ATORVASTATIN [Concomitant]
     Indication: BLOOD CHOLESTEROL INCREASED
     Route: 048
  12. TRAZADONE [Concomitant]
     Indication: NERVOUSNESS
     Route: 048
     Dates: start: 2000
  13. CLARITIN [Concomitant]
     Indication: SINUS CONGESTION
     Dosage: DAILY
     Route: 048
     Dates: start: 201210
  14. ZYRTEC [Concomitant]
     Indication: SINUS CONGESTION
     Dosage: DAILY
     Route: 048

REACTIONS (8)
  - Anxiety [Unknown]
  - Panic attack [Unknown]
  - Crying [Unknown]
  - Social avoidant behaviour [Unknown]
  - Feeling abnormal [Unknown]
  - Ulcer [Unknown]
  - Dyspepsia [Unknown]
  - Depression [Unknown]
